FAERS Safety Report 18477163 (Version 1)
Quarter: 2020Q4

REPORT INFORMATION
  Report Type: Report from Study
  Country: US (occurrence: US)
  Receive Date: 20201107
  Receipt Date: 20201107
  Transmission Date: 20210114
  Serious: Yes (Hospitalization, Other)
  Sender: FDA-Public Use
  Company Number: US-TAKEDA-US201933947

PATIENT
  Age: 17 Year
  Sex: Male

DRUGS (4)
  1. ELAPRASE [Suspect]
     Active Substance: IDURSULFASE
     Dosage: 24 MILLIGRAM, 1X/WEEK
     Route: 042
     Dates: start: 20120924
  2. ELAPRASE [Suspect]
     Active Substance: IDURSULFASE
     Dosage: 24 MILLIGRAM, 1X/WEEK
     Route: 042
     Dates: start: 20200116
  3. ELAPRASE [Suspect]
     Active Substance: IDURSULFASE
     Indication: MUCOPOLYSACCHARIDOSIS II
     Dosage: 4 DOSAGE FORM, 1X/WEEK
     Route: 042
     Dates: start: 20070315
  4. ELAPRASE [Suspect]
     Active Substance: IDURSULFASE
     Dosage: 24 MILLIGRAM, 1X/WEEK
     Route: 042
     Dates: start: 20120925

REACTIONS (8)
  - Pneumonia [Recovered/Resolved]
  - Poor venous access [Unknown]
  - Complication associated with device [Unknown]
  - Inappropriate schedule of product administration [Unknown]
  - Vascular device infection [Recovered/Resolved]
  - Staphylococcal infection [Unknown]
  - Device malfunction [Unknown]
  - Product dose omission issue [Unknown]

NARRATIVE: CASE EVENT DATE: 20190930
